FAERS Safety Report 5733003-5 (Version None)
Quarter: 2008Q2

REPORT INFORMATION
  Report Type: 
  Country: None (occurrence: None)
  Receive Date: 20080509
  Receipt Date: 20080428
  Transmission Date: 20081010
  Serious: Yes (Hospitalization)
  Sender: FDA-Public Use
  Company Number: SE-JNJFOC-20080407145

PATIENT
  Sex: Female
  Weight: 57 kg

DRUGS (6)
  1. CONCERTA [Suspect]
     Route: 048
  2. CONCERTA [Suspect]
     Indication: ATTENTION DEFICIT/HYPERACTIVITY DISORDER
     Route: 048
  3. ATARAX [Concomitant]
     Route: 048
  4. PARACETAMOL [Concomitant]
     Route: 048
  5. IMOVANE [Concomitant]
     Indication: INSOMNIA
     Route: 048
  6. DOTHIEPIN HYDROCHLORIDE [Concomitant]
     Route: 048

REACTIONS (3)
  - ANXIETY [None]
  - SUICIDAL IDEATION [None]
  - SUICIDE ATTEMPT [None]
